FAERS Safety Report 8781985 (Version 2)
Quarter: 2012Q4

REPORT INFORMATION
  Report Type: 
  Country: US (occurrence: US)
  Receive Date: 20120913
  Receipt Date: 20121017
  Transmission Date: 20130627
  Serious: No
  Sender: FDA-Public Use
  Company Number: US-VERTEX PHARMACEUTICAL INC.-2012-020090

PATIENT
  Sex: Female
  Weight: 54 kg

DRUGS (3)
  1. INCIVEK [Suspect]
     Indication: HEPATITIS C
     Dosage: 750 mg, tid
     Route: 048
     Dates: start: 20120807
  2. PEGINTRON [Suspect]
     Indication: HEPATITIS C
     Dosage: UNK
     Dates: start: 20120807
  3. RIBAVIRIN [Suspect]
     Indication: HEPATITIS C
     Dosage: 1 DF, bid
     Route: 048
     Dates: start: 20120807

REACTIONS (10)
  - Pelvic inflammatory disease [Unknown]
  - Gingival pain [Not Recovered/Not Resolved]
  - Oral pain [Not Recovered/Not Resolved]
  - Weight decreased [Not Recovered/Not Resolved]
  - Decreased appetite [Not Recovered/Not Resolved]
  - Fatigue [Not Recovered/Not Resolved]
  - Nausea [Not Recovered/Not Resolved]
  - Dysgeusia [Not Recovered/Not Resolved]
  - Diarrhoea [Not Recovered/Not Resolved]
  - Rash papular [Not Recovered/Not Resolved]
